FAERS Safety Report 9704902 (Version 2)
Quarter: 2015Q1

REPORT INFORMATION
  Report Type: Not Available
  Country: US (occurrence: US)
  Receive Date: 20131122
  Receipt Date: 20150218
  Transmission Date: 20150721
  Serious: No
  Sender: FDA-Public Use
  Company Number: US-AMARIN PHARMA, INC.-2013AMR000076

PATIENT
  Age: 62 Year
  Sex: Female
  Weight: 74.91 kg

DRUGS (6)
  1. VASCEPA [Suspect]
     Active Substance: ETHYL ICOSAPENTATE
     Indication: HIGH DENSITY LIPOPROTEIN INCREASED
  2. LEVOTHYROXINE [Concomitant]
     Active Substance: LEVOTHYROXINE
     Indication: HYPOTHYROIDISM
  3. CYMBALTA [Concomitant]
     Active Substance: DULOXETINE HYDROCHLORIDE
     Indication: FIBROMYALGIA
  4. VASCEPA [Suspect]
     Active Substance: ETHYL ICOSAPENTATE
     Indication: LOW DENSITY LIPOPROTEIN
  5. AMBIEN [Concomitant]
     Active Substance: ZOLPIDEM TARTRATE
     Indication: PRODUCT USED FOR UNKNOWN INDICATION
  6. VASCEPA [Suspect]
     Active Substance: ETHYL ICOSAPENTATE
     Indication: BLOOD TRIGLYCERIDES INCREASED
     Route: 065
     Dates: start: 20130712, end: 20131007

REACTIONS (6)
  - Alopecia [None]
  - Hearing impaired [None]
  - Fatigue [None]
  - Cyst [Recovering/Resolving]
  - Tinnitus [None]
  - Asthenia [None]

NARRATIVE: CASE EVENT DATE: 201308
